FAERS Safety Report 4521190-6 (Version None)
Quarter: 2004Q4

REPORT INFORMATION
  Report Type: 
  Country: None (occurrence: None)
  Receive Date: 20041206
  Receipt Date: 20041119
  Transmission Date: 20050328
  Serious: Yes (Other)
  Sender: FDA-Public Use
  Company Number: 2004-BP-12201RO

PATIENT
  Age: 31 Year
  Sex: Female

DRUGS (5)
  1. METHADONE HCL [Suspect]
     Indication: DRUG THERAPY
     Dosage: 230 MG, PO
     Route: 048
  2. SERTRALINE (SERTRALINE) [Suspect]
     Dosage: 50 MG
  3. ATENOLOL [Concomitant]
  4. CLORAZEPATE (CLORAZEPATE) [Concomitant]
  5. MAGNESIUM (MAGNESIUM) [Concomitant]

REACTIONS (2)
  - DRUG INTERACTION [None]
  - ELECTROCARDIOGRAM QT CORRECTED INTERVAL PROLONGED [None]
